FAERS Safety Report 20539018 (Version 1)
Quarter: 2022Q1

REPORT INFORMATION
  Report Type: Spontaneous
  Country: DE (occurrence: DE)
  Receive Date: 20220302
  Receipt Date: 20220302
  Transmission Date: 20220423
  Serious: Yes (Hospitalization, Other)
  Sender: FDA-Public Use
  Company Number: DE-EMBRYOTOX-202002533

PATIENT
  Age: 1 Day
  Sex: Male
  Weight: 3.23 kg

DRUGS (11)
  1. TRAMADOL HYDROCHLORIDE [Suspect]
     Active Substance: TRAMADOL HYDROCHLORIDE
     Indication: Foetal exposure during pregnancy
     Dosage: 200 MILLIGRAM, 1/DAY
     Route: 064
  2. TRAMADOL HYDROCHLORIDE [Suspect]
     Active Substance: TRAMADOL HYDROCHLORIDE
     Dosage: 800 MILLIGRAM, 1/DAY
     Route: 064
  3. TRAMADOL HYDROCHLORIDE [Suspect]
     Active Substance: TRAMADOL HYDROCHLORIDE
     Dosage: 400 MILLIGRAM, 1/DAY
     Route: 064
  4. TIANEPTINE SODIUM [Concomitant]
     Active Substance: TIANEPTINE SODIUM
     Dosage: UNK
     Route: 064
  5. METOPROLOL [Concomitant]
     Active Substance: METOPROLOL
     Dosage: UNK
     Route: 064
  6. METHYLDOPA [Concomitant]
     Active Substance: METHYLDOPA
     Dosage: 1500 MILLIGRAM, 1/DAY
     Route: 064
     Dates: start: 20200203, end: 20200206
  7. METHYLDOPA [Concomitant]
     Active Substance: METHYLDOPA
     Dosage: 250 MILLIGRAM, 1/DAY
     Route: 064
  8. TILIDINE [Concomitant]
     Active Substance: TILIDINE
     Dosage: 50 MILLIGRAM, 1/DAY
     Route: 064
  9. OMEPRAZOLE [Concomitant]
     Active Substance: OMEPRAZOLE
     Dosage: 20 MILLIGRAM, 1/DAY
     Route: 064
     Dates: start: 20191221, end: 20200924
  10. CLONIDINE [Concomitant]
     Active Substance: CLONIDINE
     Dosage: 3 MILLIGRAM, 1/DAY
     Route: 064
  11. INFLUVAC TETRA [Concomitant]
     Active Substance: INFLUENZA VIRUS VACCINE QUADRIVALENT TYPE A+B
     Dosage: UNK
     Route: 064
     Dates: start: 20200402, end: 20200402

REACTIONS (3)
  - Reflexes abnormal [Recovered/Resolved]
  - Foetal exposure during pregnancy [Unknown]
  - Drug withdrawal syndrome neonatal [Recovered/Resolved]

NARRATIVE: CASE EVENT DATE: 20200924
